FAERS Safety Report 10735074 (Version 1)
Quarter: 2015Q1

REPORT INFORMATION
  Report Type: Spontaneous
  Country: FR (occurrence: FR)
  Receive Date: 20150123
  Receipt Date: 20150123
  Transmission Date: 20150721
  Serious: Yes (Other)
  Sender: FDA-Public Use
  Company Number: FR-ROXANE LABORATORIES, INC.-2015-RO-00097RO

PATIENT
  Sex: Female
  Weight: 2 kg

DRUGS (1)
  1. DEXAMETHASONE. [Suspect]
     Active Substance: DEXAMETHASONE
     Indication: PROPHYLAXIS
     Route: 064

REACTIONS (4)
  - Foetal growth restriction [Unknown]
  - Maternal drugs affecting foetus [None]
  - Premature baby [Unknown]
  - Low birth weight baby [Unknown]
